FAERS Safety Report 4460201-3 (Version None)
Quarter: 2004Q3

REPORT INFORMATION
  Report Type: 
  Country: None (occurrence: None)
  Receive Date: 20040928
  Receipt Date: 20040120
  Transmission Date: 20050211
  Serious: No
  Sender: FDA-Public Use
  Company Number: US-GLAXOSMITHKLINE-A0494912A

PATIENT
  Age: 41 Year
  Sex: Female
  Weight: 118.6 kg

DRUGS (7)
  1. SEREVENT [Suspect]
     Indication: ASTHMA
     Route: 055
     Dates: start: 20000101, end: 20030101
  2. PROZAC [Concomitant]
  3. KLONOPIN [Concomitant]
  4. SINGULAIR [Concomitant]
     Dosage: 10MG PER DAY
     Route: 048
  5. NEXIUM [Concomitant]
     Dosage: 4G PER DAY
     Route: 048
  6. CLARINEX [Concomitant]
     Dosage: 5MG PER DAY
     Route: 048
  7. ALBUTEROL [Concomitant]

REACTIONS (2)
  - ADVERSE EVENT [None]
  - DRUG INEFFECTIVE [None]
